FAERS Safety Report 11087947 (Version 2)
Quarter: 2015Q3

REPORT INFORMATION
  Report Type: Spontaneous
  Country: US (occurrence: US)
  Receive Date: 20150504
  Receipt Date: 20150702
  Transmission Date: 20151125
  Serious: No
  Sender: FDA-Public Use
  Company Number: US-009507513-1504USA021670

PATIENT
  Age: 28 Year
  Sex: Female
  Weight: 54.42 kg

DRUGS (7)
  1. CLONAZEPAM. [Concomitant]
     Active Substance: CLONAZEPAM
  2. HYOSCYAMINE. [Concomitant]
     Active Substance: HYOSCYAMINE
  3. NEXPLANON [Suspect]
     Active Substance: ETONOGESTREL
     Indication: OVARIAN CYST
  4. PROPRANOLOL [Concomitant]
     Active Substance: PROPRANOLOL\PROPRANOLOL HYDROCHLORIDE
  5. NEXPLANON [Suspect]
     Active Substance: ETONOGESTREL
     Indication: CONTRACEPTION
     Dosage: 3 YEAR IMPLANT
     Route: 059
     Dates: start: 20140328
  6. NEXPLANON [Suspect]
     Active Substance: ETONOGESTREL
     Indication: DYSMENORRHOEA
  7. PANTOPRAZOLE SODIUM. [Concomitant]
     Active Substance: PANTOPRAZOLE SODIUM

REACTIONS (6)
  - Dysmenorrhoea [Unknown]
  - Polymenorrhoea [Unknown]
  - Drug administration error [Unknown]
  - Dizziness [Unknown]
  - Menstrual disorder [Unknown]
  - Metrorrhagia [Unknown]

NARRATIVE: CASE EVENT DATE: 20140328
